FAERS Safety Report 20880539 (Version 4)
Quarter: 2022Q3

REPORT INFORMATION
  Report Type: Spontaneous
  Country: ES (occurrence: ES)
  Receive Date: 20220526
  Receipt Date: 20220714
  Transmission Date: 20221026
  Serious: Yes (Other)
  Sender: FDA-Public Use
  Company Number: ES-BIOGEN-2022BI01125912

PATIENT
  Age: 28 Year
  Sex: Male
  Weight: 78 kg

DRUGS (2)
  1. TECFIDERA [Suspect]
     Active Substance: DIMETHYL FUMARATE
     Indication: Multiple sclerosis
     Dosage: ONE CAPSULE IN THE MORNING AND ANOTHER IN THE AFTERNOON
     Route: 050
     Dates: start: 20211209, end: 20220517
  2. TECFIDERA [Suspect]
     Active Substance: DIMETHYL FUMARATE
     Dosage: RESUMED
     Route: 050
     Dates: start: 2022

REACTIONS (1)
  - HIV meningoencephalitis [Recovered/Resolved]

NARRATIVE: CASE EVENT DATE: 20220503
